FAERS Safety Report 6888179-3 (Version None)
Quarter: 2010Q3

REPORT INFORMATION
  Report Type: 
  Country: None (occurrence: None)
  Receive Date: 20100730
  Receipt Date: 20100615
  Transmission Date: 20110219
  Serious: Yes (Hospitalization, Other)
  Sender: FDA-Public Use
  Company Number: US-BAYER-201012823NA

PATIENT
  Age: 42 Year
  Sex: Female
  Weight: 66 kg

DRUGS (9)
  1. YASMIN [Suspect]
     Indication: CONTRACEPTION
     Route: 048
     Dates: start: 20050501, end: 20080701
  2. DROSPIRENONE AND EHTINYL ESTRADIOL [Suspect]
     Indication: CONTRACEPTION
     Route: 048
     Dates: start: 20080701, end: 20091001
  3. AMERGE [Concomitant]
     Indication: MIGRAINE
     Route: 065
     Dates: start: 20040101, end: 20080101
  4. GABAPENTIN [Concomitant]
     Indication: MIGRAINE
     Route: 065
     Dates: start: 20080101
  5. HYOMAX [Concomitant]
     Indication: GASTROINTESTINAL DISORDER
     Route: 065
     Dates: start: 20071001, end: 20081001
  6. NEXIUM [Concomitant]
     Route: 065
  7. SKELAXIN [Concomitant]
  8. FIORICET [Concomitant]
  9. CRESTOR [Concomitant]

REACTIONS (7)
  - ABDOMINAL PAIN UPPER [None]
  - BILIARY DYSKINESIA [None]
  - CHOLECYSTITIS CHRONIC [None]
  - FOOD INTOLERANCE [None]
  - GALLBLADDER DISORDER [None]
  - NAUSEA [None]
  - VOMITING [None]
